FAERS Safety Report 7163372-3 (Version None)
Quarter: 2010Q4

REPORT INFORMATION
  Report Type: 
  Country: None (occurrence: None)
  Receive Date: 20101215
  Receipt Date: 20100407
  Transmission Date: 20110411
  Serious: Yes (Other)
  Sender: FDA-Public Use
  Company Number: US-PFIZER INC-2009242912

PATIENT
  Sex: Female
  Weight: 52.154 kg

DRUGS (5)
  1. LYRICA [Suspect]
     Indication: PAIN
     Dosage: 75 MG, 2X/DAY
     Route: 048
     Dates: start: 20070101, end: 20070301
  2. LYRICA [Suspect]
     Dosage: 40 MG, 4X/DAY
     Route: 048
  3. PHOSPHATIDYL SERINE [Concomitant]
     Dosage: UNK
     Route: 048
  4. GINKO BILOBA [Concomitant]
     Dosage: UNK
     Route: 048
  5. VITAMIN B COMPLEX [Concomitant]
     Dosage: UNK
     Route: 048

REACTIONS (26)
  - ABASIA [None]
  - BALANCE DISORDER [None]
  - BONE DISORDER [None]
  - CARDIAC DISORDER [None]
  - CARDIAC VENTRICULAR DISORDER [None]
  - CARDIOVASCULAR DISORDER [None]
  - CONCUSSION [None]
  - COORDINATION ABNORMAL [None]
  - CYANOSIS [None]
  - DIZZINESS [None]
  - DYSGRAPHIA [None]
  - DYSSTASIA [None]
  - ERYTHEMA [None]
  - EXERCISE TOLERANCE DECREASED [None]
  - FALL [None]
  - FEELING ABNORMAL [None]
  - GAIT DISTURBANCE [None]
  - HEAD INJURY [None]
  - INFLAMMATION [None]
  - JAW DISORDER [None]
  - MUSCULOSKELETAL STIFFNESS [None]
  - NAUSEA [None]
  - SWELLING [None]
  - TEMPERATURE INTOLERANCE [None]
  - TINNITUS [None]
  - TOOTH DISCOLOURATION [None]
